FAERS Safety Report 9193590 (Version 7)
Quarter: 2014Q1

REPORT INFORMATION
  Report Type: Spontaneous
  Country: US (occurrence: US)
  Receive Date: 20130327
  Receipt Date: 20140329
  Transmission Date: 20141002
  Serious: Yes (Hospitalization)
  Sender: FDA-Public Use
  Company Number: US-JNJFOC-20120809648

PATIENT
  Age: 43 Year
  Sex: Female
  Weight: 59.88 kg

DRUGS (16)
  1. TYLENOL EXTRA STRENGTH [Suspect]
     Indication: PYREXIA
     Route: 065
     Dates: start: 201007, end: 20100813
  2. TYLENOL EXTRA STRENGTH [Suspect]
     Indication: HEADACHE
     Route: 065
     Dates: start: 201007, end: 20100813
  3. AZATHIOPRINE [Suspect]
     Indication: DIARRHOEA
     Dosage: TOOK FOR 5 DAYS
     Route: 065
     Dates: start: 2010, end: 2010
  4. ATIVAN [Suspect]
     Indication: ANXIETY
     Route: 065
     Dates: start: 201007, end: 20100819
  5. PAXIL [Suspect]
     Indication: ANXIETY
     Route: 065
     Dates: start: 20100725, end: 20100809
  6. CIPRO [Suspect]
     Indication: URINARY TRACT INFECTION
     Route: 065
     Dates: start: 20100809, end: 201008
  7. LANSOPRAZOLE [Concomitant]
     Indication: PRODUCT USED FOR UNKNOWN INDICATION
     Route: 065
     Dates: start: 201008
  8. METOCLOPRAMIDE [Concomitant]
     Indication: NAUSEA
     Route: 065
     Dates: start: 201008
  9. MEFLOQUINE [Concomitant]
     Indication: MALARIA PROPHYLAXIS
     Route: 065
     Dates: start: 2010, end: 20100711
  10. VITAMIN D [Concomitant]
     Indication: VITAMIN D DEFICIENCY
     Route: 048
  11. HYDROCORTISONE ACETATE [Concomitant]
     Indication: PRODUCT USED FOR UNKNOWN INDICATION
     Route: 054
  12. ETHINYLESTRADIOL/ETONOGESTREL [Concomitant]
     Indication: PRODUCT USED FOR UNKNOWN INDICATION
     Route: 067
  13. MEDROXYPROGESTERONE [Concomitant]
     Indication: PRODUCT USED FOR UNKNOWN INDICATION
     Route: 030
  14. ACETYLCYSTEINE [Concomitant]
     Indication: PRODUCT USED FOR UNKNOWN INDICATION
     Route: 042
  15. BARACLUDE [Concomitant]
     Indication: PRODUCT USED FOR UNKNOWN INDICATION
  16. PREVACID [Concomitant]
     Indication: PRODUCT USED FOR UNKNOWN INDICATION
     Route: 065

REACTIONS (3)
  - Acute hepatic failure [Recovering/Resolving]
  - Hepatitis E [Not Recovered/Not Resolved]
  - Hepatic enzyme increased [Recovering/Resolving]
